FAERS Safety Report 4939322-4 (Version None)
Quarter: 2006Q1

REPORT INFORMATION
  Report Type: 
  Country: None (occurrence: None)
  Receive Date: 20060306
  Receipt Date: 20060222
  Transmission Date: 20060701
  Serious: Yes (Other)
  Sender: FDA-Public Use
  Company Number: 2006BH003819

PATIENT
  Sex: 0

DRUGS (1)
  1. DEXAMETHASONE [Suspect]
     Indication: MALIGNANT NEOPLASM OF SPINAL CORD
     Dosage: 96 MG

REACTIONS (4)
  - CHOLANGITIS [None]
  - METASTASES TO PANCREAS [None]
  - OBSTRUCTION [None]
  - SEPSIS [None]
